FAERS Safety Report 4778522-3 (Version None)
Quarter: 2005Q3

REPORT INFORMATION
  Report Type: 
  Country: None (occurrence: None)
  Receive Date: 20050926
  Receipt Date: 20050613
  Transmission Date: 20060218
  Serious: No
  Sender: FDA-Public Use
  Company Number: US-BRISTOL-MYERS SQUIBB COMPANY-13001060

PATIENT
  Age: 68 Year
  Sex: Male
  Weight: 79 kg

DRUGS (9)
  1. REYATAZ [Suspect]
     Indication: HIV INFECTION
     Route: 048
  2. EPZICOM [Concomitant]
  3. VIREAD [Concomitant]
  4. BACTRIM [Concomitant]
  5. CRESTOR [Concomitant]
  6. ASPIRIN [Concomitant]
  7. ACYCLOVIR [Concomitant]
  8. PROZAC [Concomitant]
  9. VITAMIN [Concomitant]

REACTIONS (1)
  - CONFUSIONAL STATE [None]
